FAERS Safety Report 5876616-2 (Version None)
Quarter: 2008Q3

REPORT INFORMATION
  Report Type: 
  Country: None (occurrence: None)
  Receive Date: 20080908
  Receipt Date: 20080821
  Transmission Date: 20090109
  Serious: Yes (Other)
  Sender: FDA-Public Use
  Company Number: 8035651

PATIENT
  Age: 43 Year
  Sex: Female
  Weight: 78.6 kg

DRUGS (8)
  1. CIMZIA [Suspect]
     Indication: CROHN'S DISEASE
     Dosage: 400 MG 1/2W SC
     Route: 058
     Dates: start: 20080602
  2. SYNTHROID [Concomitant]
  3. NEXIUM [Concomitant]
  4. AMBIEN [Concomitant]
  5. LOMOTIL /00034001/ [Concomitant]
  6. IMODIUM /000384302/ [Concomitant]
  7. CALTRATE /00108001/ [Concomitant]
  8. XANAX [Concomitant]

REACTIONS (3)
  - ANGLE CLOSURE GLAUCOMA [None]
  - EPISCLERITIS [None]
  - HERPES ZOSTER [None]
